FAERS Safety Report 14487897 (Version 2)
Quarter: 2018Q1

REPORT INFORMATION
  Report Type: Spontaneous
  Country: ES (occurrence: ES)
  Receive Date: 20180205
  Receipt Date: 20180214
  Transmission Date: 20180509
  Serious: Yes (Hospitalization)
  Sender: FDA-Public Use
  Company Number: ES-ASTRAZENECA-2018SE12001

PATIENT
  Age: 56 Year
  Sex: Male

DRUGS (9)
  1. ABSTRAL [Suspect]
     Active Substance: FENTANYL CITRATE
     Indication: PAIN
     Dosage: 400.0UG UNKNOWN
     Route: 060
     Dates: start: 20170822, end: 2017
  2. OMEPRAZOLE. [Concomitant]
     Active Substance: OMEPRAZOLE
  3. PRIMPERAN [Concomitant]
     Active Substance: METOCLOPRAMIDE HYDROCHLORIDE
  4. ABSTRAL [Suspect]
     Active Substance: FENTANYL CITRATE
     Indication: PAIN
     Dosage: 400 UG, 4-5 RESCUES PER DAY UNKNOWN
     Route: 060
     Dates: start: 20170813
  5. TOUJEO [Concomitant]
     Active Substance: INSULIN GLARGINE
  6. OXYCONTIN [Concomitant]
     Active Substance: OXYCODONE HYDROCHLORIDE
     Dates: start: 20170817, end: 201712
  7. MOVANTIK [Suspect]
     Active Substance: NALOXEGOL OXALATE
     Indication: CONSTIPATION
     Route: 048
     Dates: start: 20170817
  8. TARGIN [Concomitant]
     Active Substance: NALOXONE HYDROCHLORIDE\OXYCODONE HYDROCHLORIDE
     Dates: start: 20171213
  9. ABSTRAL [Suspect]
     Active Substance: FENTANYL CITRATE
     Indication: PAIN
     Dosage: 400 UG, 4-5 RESCUES PER DAY
     Route: 060
     Dates: start: 2017, end: 20170813

REACTIONS (15)
  - Constipation [Recovering/Resolving]
  - Drug dose titration not performed [Unknown]
  - Inappropriate schedule of drug administration [Unknown]
  - Restlessness [Unknown]
  - Pain [Unknown]
  - Labelled drug-drug interaction medication error [Unknown]
  - Hyperhidrosis [Unknown]
  - Tachycardia [Unknown]
  - Disorientation [Unknown]
  - Agitation [Recovering/Resolving]
  - Restless legs syndrome [Unknown]
  - Withdrawal syndrome [Recovering/Resolving]
  - Nervousness [Unknown]
  - Yawning [Unknown]
  - Piloerection [Unknown]

NARRATIVE: CASE EVENT DATE: 201801
